FAERS Safety Report 17529189 (Version 1)
Quarter: 2020Q1

REPORT INFORMATION
  Report Type: Spontaneous
  Country: GB (occurrence: GB)
  Receive Date: 20200312
  Receipt Date: 20200312
  Transmission Date: 20200409
  Serious: Yes (Hospitalization, Other)
  Sender: FDA-Public Use
  Company Number: GB-TEVA-2020-GB-1197153

PATIENT
  Age: 79 Year
  Sex: Male

DRUGS (6)
  1. SAXAGLIPTIN [Concomitant]
     Active Substance: SAXAGLIPTIN
  2. TAMSULOSIN [Concomitant]
     Active Substance: TAMSULOSIN
     Dosage: 400 MICROGRAM DAILY; MORNING
  3. CITALOPRAM [Concomitant]
     Active Substance: CITALOPRAM HYDROBROMIDE
     Dosage: 200 MILLIGRAM DAILY; MORNING
  4. METFORMIN [Concomitant]
     Active Substance: METFORMIN HYDROCHLORIDE
  5. LOSARTAN. [Suspect]
     Active Substance: LOSARTAN
     Dosage: 50 MG 1 DAYS
     Route: 048
     Dates: end: 20190715
  6. AMLODIPINE [Concomitant]
     Active Substance: AMLODIPINE BESYLATE
     Dosage: 5 MG 1 DAYS

REACTIONS (5)
  - Dysarthria [Unknown]
  - Acute kidney injury [Recovered/Resolved with Sequelae]
  - Suprapubic pain [Unknown]
  - Urosepsis [Unknown]
  - Confusional state [Unknown]

NARRATIVE: CASE EVENT DATE: 20190717
